FAERS Safety Report 4400148-1 (Version None)
Quarter: 2004Q3

REPORT INFORMATION
  Report Type: 
  Country: None (occurrence: None)
  Receive Date: 20040716
  Receipt Date: 20040629
  Transmission Date: 20050211
  Serious: Yes (Other)
  Sender: FDA-Public Use
  Company Number: US_0403101911

PATIENT
  Age: 84 Year
  Sex: Female
  Weight: 55 kg

DRUGS (16)
  1. EVISTA [Suspect]
     Indication: OSTEOPOROSIS
     Dates: end: 20040323
  2. FOSAMAX [Concomitant]
  3. ACTONEL [Concomitant]
  4. MIACALCIN [Concomitant]
  5. HORMONE REPLACEMENT THERAPY [Concomitant]
  6. ADVAIR DISKUS 100/50 [Concomitant]
  7. AMBIEN [Concomitant]
  8. MONOPRIL [Concomitant]
  9. NEXIUM [Concomitant]
  10. PLAVIX (CLOPIDOGERL SULFATE) [Concomitant]
  11. SPIRONOLACTONE [Concomitant]
  12. SYNTHROID [Concomitant]
  13. ULTRACET [Concomitant]
  14. VERAPAMIL [Concomitant]
  15. LORTAB [Concomitant]
  16. ALBUTEROL [Concomitant]

REACTIONS (9)
  - ASTHENIA [None]
  - COMPRESSION FRACTURE [None]
  - FALL [None]
  - FLUID RETENTION [None]
  - FRACTURE [None]
  - FRACTURED SACRUM [None]
  - HYPONATRAEMIA [None]
  - LUMBAR VERTEBRAL FRACTURE [None]
  - THORACIC VERTEBRAL FRACTURE [None]
